FAERS Safety Report 24687548 (Version 1)
Quarter: 2024Q4

REPORT INFORMATION
  Report Type: Spontaneous
  Country: US (occurrence: None)
  Receive Date: 20241202
  Receipt Date: 20241202
  Transmission Date: 20250114
  Serious: No
  Sender: Public
  Company Number: None

PATIENT
  Age: 36 Year
  Sex: Female
  Weight: 65.25 kg

DRUGS (6)
  1. NURTEC ODT [Suspect]
     Active Substance: RIMEGEPANT SULFATE
     Indication: Migraine prophylaxis
     Dosage: OTHER QUANTITY : 1 TABLET(S);?OTHER FREQUENCY : EVERY OTHER DAY;?
     Route: 048
     Dates: start: 20241125
  2. HYDROCHLOROTHIAZIDE [Concomitant]
     Active Substance: HYDROCHLOROTHIAZIDE
  3. SERTRALINE [Concomitant]
     Active Substance: SERTRALINE HYDROCHLORIDE
  4. ONDANSETRON [Concomitant]
     Active Substance: ONDANSETRON
  5. VITAMINS [Concomitant]
     Active Substance: VITAMINS
  6. CETIRIZINE [Concomitant]
     Active Substance: CETIRIZINE HYDROCHLORIDE

REACTIONS (3)
  - Nausea [None]
  - Diarrhoea [None]
  - Gastrooesophageal reflux disease [None]

NARRATIVE: CASE EVENT DATE: 20241202
